FAERS Safety Report 7518579-X (Version None)
Quarter: 2011Q2

REPORT INFORMATION
  Report Type: 
  Country: None (occurrence: None)
  Receive Date: 20110602
  Receipt Date: 20110525
  Transmission Date: 20111010
  Serious: Yes (Other)
  Sender: FDA-Public Use
  Company Number: US-NOVOPROD-325524

PATIENT
  Age: 53 Year
  Sex: Female
  Weight: 105.22 kg

DRUGS (9)
  1. DIOVAN HCT [Concomitant]
     Indication: PRODUCT USED FOR UNKNOWN INDICATION
     Dosage: 160/12.5 MG, QD
     Dates: start: 20020101
  2. FLUOXETINE [Concomitant]
     Indication: PRODUCT USED FOR UNKNOWN INDICATION
     Dosage: 40 MG, QD
     Dates: start: 20020101
  3. CARVEDILOL [Concomitant]
     Indication: PRODUCT USED FOR UNKNOWN INDICATION
     Dosage: 25 MG, BID
     Dates: start: 20080101
  4. VICTOZA [Suspect]
     Indication: TYPE 2 DIABETES MELLITUS
     Dosage: .6 MG, QD
     Route: 058
     Dates: start: 20101025
  5. VICTOZA [Suspect]
     Dosage: 1.2 MG, QD
  6. VICTOZA [Suspect]
     Dosage: 1.2 MG, QD
     Dates: start: 20101103, end: 20110114
  7. VICTOZA [Suspect]
     Dosage: .6 MG, QD
     Dates: start: 20110126
  8. VICTOZA [Suspect]
     Dosage: 1.8 MG, QD
     Dates: end: 20101102
  9. METFORMIN HCL [Concomitant]
     Indication: PRODUCT USED FOR UNKNOWN INDICATION
     Dosage: XR 1000 MG, QD
     Dates: start: 20020101

REACTIONS (1)
  - PANCREATIC CARCINOMA [None]
